FAERS Safety Report 15623620 (Version 1)
Quarter: 2018Q4

REPORT INFORMATION
  Report Type: Spontaneous
  Country: US (occurrence: US)
  Receive Date: 20181115
  Receipt Date: 20181115
  Transmission Date: 20190205
  Serious: No
  Sender: FDA-Public Use
  Company Number: US-BAYER-2018-212762

PATIENT
  Sex: Female
  Weight: 73.97 kg

DRUGS (1)
  1. ALEVE [Suspect]
     Active Substance: NAPROXEN SODIUM
     Indication: PAIN
     Dosage: 20 DF, UNK
     Route: 048
     Dates: end: 20181114

REACTIONS (2)
  - Drug ineffective [Unknown]
  - Pain [Unknown]
